FAERS Safety Report 15892898 (Version 1)
Quarter: 2019Q1

REPORT INFORMATION
  Report Type: Report from Study
  Country: US (occurrence: US)
  Receive Date: 20190130
  Receipt Date: 20190130
  Transmission Date: 20190417
  Serious: No
  Sender: FDA-Public Use
  Company Number: US-EXELIXIS-CABO-18016416

PATIENT
  Sex: Female

DRUGS (2)
  1. STIVARGA [Concomitant]
     Active Substance: REGORAFENIB
  2. CABOMETYX [Suspect]
     Active Substance: CABOZANTINIB S-MALATE
     Indication: RENAL CANCER
     Dosage: UNK
     Dates: start: 201809

REACTIONS (11)
  - Muscle spasms [Unknown]
  - Hypertension [Unknown]
  - Palmar-plantar erythrodysaesthesia syndrome [Recovering/Resolving]
  - Dysphonia [Unknown]
  - Weight increased [Unknown]
  - Alopecia [Unknown]
  - Blood thyroid stimulating hormone increased [Unknown]
  - Eructation [Unknown]
  - Nausea [Unknown]
  - Dyspepsia [Unknown]
  - Fatigue [Unknown]

NARRATIVE: CASE EVENT DATE: 2018
